FAERS Safety Report 8328541-5 (Version None)
Quarter: 2012Q2

REPORT INFORMATION
  Report Type: 
  Country: None (occurrence: None)
  Receive Date: 20120502
  Receipt Date: 20100818
  Transmission Date: 20120825
  Serious: No
  Sender: FDA-Public Use
  Company Number: US-TEVA-2010003976

PATIENT
  Sex: Male
  Weight: 96.248 kg

DRUGS (13)
  1. BYSTOLIC [Concomitant]
     Indication: BLOOD PRESSURE
  2. NIACIN [Concomitant]
     Indication: BLOOD CHOLESTEROL
  3. ZOLPIDEM [Concomitant]
     Indication: SLEEP DISORDER
  4. MELATONIN [Concomitant]
     Indication: SLEEP DISORDER
  5. VITAMIN D [Concomitant]
     Indication: VITAMIN SUPPLEMENTATION
  6. ALLOPURINOL [Concomitant]
     Indication: GOUT
  7. QVAR 40 [Concomitant]
     Indication: DYSPNOEA
  8. FISH OIL [Concomitant]
     Indication: BLOOD CHOLESTEROL
  9. NUVIGIL [Suspect]
     Indication: SLEEP APNOEA SYNDROME
     Dosage: 150 MILLIGRAM;
     Route: 048
     Dates: start: 20100725
  10. CRESTOR [Concomitant]
     Indication: BLOOD CHOLESTEROL
  11. ZETIA [Concomitant]
     Indication: BLOOD CHOLESTEROL
  12. TRAZODONE HCL [Concomitant]
     Indication: SLEEP DISORDER
  13. ASPIRIN [Concomitant]
     Indication: PROPHYLAXIS

REACTIONS (2)
  - BLOOD PRESSURE INCREASED [None]
  - INSOMNIA [None]
